FAERS Safety Report 15216869 (Version 2)
Quarter: 2018Q3

REPORT INFORMATION
  Report Type: Spontaneous
  Country: JP (occurrence: JP)
  Receive Date: 20180730
  Receipt Date: 20180814
  Transmission Date: 20181010
  Serious: Yes (Death)
  Sender: FDA-Public Use
  Company Number: JP-ACTELION-A-NJ2018-176514

PATIENT
  Sex: Male

DRUGS (4)
  1. VENTAVIS [Suspect]
     Active Substance: ILOPROST
     Indication: PULMONARY ARTERIAL HYPERTENSION
     Dosage: 10 MCG/ML
     Route: 055
     Dates: start: 20160801, end: 20171101
  2. VENTAVIS [Suspect]
     Active Substance: ILOPROST
     Indication: RESPIRATORY DISORDER
  3. VENTAVIS [Suspect]
     Active Substance: ILOPROST
     Indication: IDIOPATHIC PULMONARY FIBROSIS
  4. VENTAVIS [Suspect]
     Active Substance: ILOPROST
     Indication: EMPHYSEMA

REACTIONS (1)
  - Lung neoplasm malignant [Fatal]
